FAERS Safety Report 17532779 (Version 1)
Quarter: 2020Q1

REPORT INFORMATION
  Report Type: Spontaneous
  Country: US (occurrence: US)
  Receive Date: 20200304
  Receipt Date: 20200304
  Transmission Date: 20200409
  Serious: Yes (Other)
  Sender: FDA-Public Use
  Company Number: None

PATIENT
  Age: 52 Year
  Sex: Female
  Weight: 100.7 kg

DRUGS (1)
  1. ALLOPURINOL 300MG [Suspect]
     Active Substance: ALLOPURINOL
     Indication: GOUT
     Route: 048
     Dates: start: 20181218, end: 20190118

REACTIONS (1)
  - Blood uric acid increased [None]

NARRATIVE: CASE EVENT DATE: 20190121
